FAERS Safety Report 8322835-5 (Version None)
Quarter: 2012Q2

REPORT INFORMATION
  Report Type: 
  Country: None (occurrence: None)
  Receive Date: 20120430
  Receipt Date: 20120424
  Transmission Date: 20120825
  Serious: Yes (Other)
  Sender: FDA-Public Use
  Company Number: PHHY2012FR034756

PATIENT
  Age: 80 Year
  Sex: Female

DRUGS (4)
  1. ISONIAZID [Suspect]
     Indication: DISSEMINATED TUBERCULOSIS
  2. RIFAMPICIN [Suspect]
     Indication: DISSEMINATED TUBERCULOSIS
  3. ETHAMBUTOL HYDROCHLORIDE [Suspect]
     Indication: DISSEMINATED TUBERCULOSIS
  4. PYRAZINAMIDE [Suspect]
     Indication: DISSEMINATED TUBERCULOSIS

REACTIONS (2)
  - SKIN LESION [None]
  - PARADOXICAL DRUG REACTION [None]
